FAERS Safety Report 6048249-9 (Version None)
Quarter: 2009Q1

REPORT INFORMATION
  Report Type: 
  Country: None (occurrence: None)
  Receive Date: 20090123
  Receipt Date: 20090119
  Transmission Date: 20090719
  Serious: Yes (Life-Threatening)
  Sender: FDA-Public Use
  Company Number: JP-BRISTOL-MYERS SQUIBB COMPANY-14416796

PATIENT
  Age: 48 Year
  Sex: Female

DRUGS (11)
  1. TAXOL [Suspect]
     Indication: BREAST CANCER
     Dosage: INITIATED ON 21OCT04.COURSE:4
     Route: 041
     Dates: start: 20050127, end: 20050127
  2. ENDOXAN [Suspect]
     Indication: BREAST CANCER
     Dosage: INITIATED ON 24FEB05. COURSE:4
     Route: 041
     Dates: start: 20050509, end: 20050509
  3. FLUOROURACIL [Suspect]
     Indication: BREAST CANCER
     Dosage: INITIATED ON 24FEB05. COURSE:4
     Route: 041
     Dates: start: 20050509, end: 20050509
  4. EPIRUBICIN HCL [Suspect]
     Indication: BREAST CANCER
     Dosage: INITIATED ON 24FEB05. COURSE:4
     Route: 041
     Dates: start: 20050509, end: 20050509
  5. ARIMIDEX [Suspect]
     Indication: BREAST CANCER
     Route: 048
  6. ZOFRAN [Concomitant]
     Dosage: GIVEN ON 21OCT04-27JAN05:3/4WEEK
     Route: 041
     Dates: start: 20050224, end: 20050509
  7. DECADRON [Concomitant]
     Dosage: 8MG,3/4WEEK,21OCT04-27JAN05.4MG:1/1DAY,25FEB05-13MAY05,ORAL.
     Route: 041
     Dates: start: 20050224, end: 20050509
  8. ZANTAC [Concomitant]
     Route: 041
     Dates: start: 20041021, end: 20050127
  9. CHLOR-TRIMETON [Concomitant]
     Route: 041
     Dates: start: 20041021, end: 20050127
  10. NOLVADEX [Concomitant]
     Indication: HORMONE THERAPY
     Route: 048
     Dates: start: 20050601, end: 20061027
  11. ZOFRAN ZYDIS [Concomitant]
     Route: 048
     Dates: start: 20050225, end: 20050513

REACTIONS (4)
  - ACCIDENTAL NEEDLE STICK [None]
  - ACUTE MYELOID LEUKAEMIA [None]
  - BLOOD ALKALINE PHOSPHATASE INCREASED [None]
  - PROTHROMBIN TIME PROLONGED [None]
